FAERS Safety Report 5918007-1 (Version None)
Quarter: 2008Q4

REPORT INFORMATION
  Report Type: 
  Country: None (occurrence: None)
  Receive Date: 20081014
  Receipt Date: 20081002
  Transmission Date: 20090506
  Serious: Yes (Hospitalization)
  Sender: FDA-Public Use
  Company Number: JP-PFIZER INC-2008058913

PATIENT
  Sex: Female

DRUGS (9)
  1. AZULFIDINE [Suspect]
     Indication: RHEUMATOID ARTHRITIS
     Dosage: DAILY DOSE:1000MG
     Route: 048
     Dates: start: 20080512, end: 20080605
  2. ONON [Concomitant]
     Route: 048
  3. METLIGINE [Concomitant]
     Route: 048
  4. KALLIDINOGENASE [Concomitant]
     Route: 048
  5. CALONAL [Concomitant]
     Route: 048
  6. ALLOPURINOL [Concomitant]
     Route: 048
  7. PREDNISOLONE [Concomitant]
     Route: 048
  8. KALIMATE [Concomitant]
     Route: 048
  9. BASEN [Concomitant]
     Route: 048

REACTIONS (1)
  - DRUG ERUPTION [None]
